FAERS Safety Report 20712692 (Version 2)
Quarter: 2022Q2

REPORT INFORMATION
  Report Type: Report from Study
  Country: US (occurrence: US)
  Receive Date: 20220415
  Receipt Date: 20220602
  Transmission Date: 20220720
  Serious: Yes (Hospitalization, Other)
  Sender: FDA-Public Use
  Company Number: US-SAMOHPHARM-2022001435

PATIENT

DRUGS (1)
  1. CARBAGLU [Suspect]
     Active Substance: CARGLUMIC ACID
     Indication: Hyperglycinaemia
     Dosage: 1000 MILLIGRAM, QID
     Dates: start: 2017

REACTIONS (9)
  - Neutropenia [Unknown]
  - Hyperglycinaemia [Recovered/Resolved]
  - Condition aggravated [Recovered/Resolved]
  - Seizure [Recovered/Resolved]
  - Metabolic alkalosis [Recovered/Resolved]
  - Ketonuria [Recovered/Resolved]
  - Vomiting [Recovered/Resolved]
  - Feeding intolerance [Recovered/Resolved]
  - Dehydration [Recovered/Resolved]

NARRATIVE: CASE EVENT DATE: 20220216
